FAERS Safety Report 6659798-4 (Version None)
Quarter: 2010Q1

REPORT INFORMATION
  Report Type: 
  Country: None (occurrence: None)
  Receive Date: 20100326
  Receipt Date: 20100316
  Transmission Date: 20100710
  Serious: Yes (Hospitalization)
  Sender: FDA-Public Use
  Company Number: 007077

PATIENT
  Sex: Female

DRUGS (9)
  1. CERTOLIZUMAB PEGOL (CDP870) [Suspect]
     Indication: RHEUMATOID ARTHRITIS
     Dosage: 100 MG 1X/2 WEEKS SUBCUTANEOUS
     Route: 058
     Dates: start: 20100121, end: 20100121
  2. DICLOFENAC SODIUM [Suspect]
     Indication: RHEUMATOID ARTHRITIS
     Dosage: 75 MG ORAL
     Route: 048
     Dates: start: 20090322, end: 20100204
  3. METHOTREXATE (METHOREXATE) [Suspect]
     Indication: RHEUMATOID ARTHRITIS
     Dosage: 8 MG ORAL
     Route: 048
     Dates: start: 20090225, end: 20100204
  4. TACROLIMUS (TACROLIMUS HYDRATE) [Suspect]
     Indication: RHEUMATOID ARTHRITIS
     Dosage: 0.5 MG ORAL
     Route: 048
     Dates: start: 20091204, end: 20100204
  5. PREDNISOLONE [Concomitant]
  6. FOLIC ACID [Concomitant]
  7. INDOMETHACIN SODIUM [Concomitant]
  8. TEPRENONE [Concomitant]
  9. ATORVASTATIN CALCIUM [Concomitant]

REACTIONS (9)
  - ABDOMINAL PAIN [None]
  - ANTIMITOCHONDRIAL ANTIBODY POSITIVE [None]
  - ASCITES [None]
  - BILIARY CIRRHOSIS PRIMARY [None]
  - BONE MARROW FAILURE [None]
  - CHOLELITHIASIS [None]
  - ENTEROCOLITIS VIRAL [None]
  - HEPATIC STEATOSIS [None]
  - HEPATOMEGALY [None]
